FAERS Safety Report 6840656-7 (Version None)
Quarter: 2010Q3

REPORT INFORMATION
  Report Type: 
  Country: None (occurrence: None)
  Receive Date: 20100714
  Receipt Date: 20100702
  Transmission Date: 20110219
  Serious: Yes (Other)
  Sender: FDA-Public Use
  Company Number: FR-ELI_LILLY_AND_COMPANY-FR201007000714

PATIENT
  Age: 66 Year
  Sex: Male

DRUGS (1)
  1. HUMALOG [Suspect]
     Dosage: 100 IU, UNKNOWN
     Route: 058

REACTIONS (3)
  - HYPOGLYCAEMIA [None]
  - HYPOGLYCAEMIC COMA [None]
  - INJECTION SITE HAEMORRHAGE [None]
